FAERS Safety Report 4796429-2 (Version None)
Quarter: 2005Q4

REPORT INFORMATION
  Report Type: 
  Country: None (occurrence: None)
  Receive Date: 20051007
  Receipt Date: 20050921
  Transmission Date: 20060501
  Serious: Yes (Hospitalization)
  Sender: FDA-Public Use
  Company Number: DSA_27202_2005

PATIENT
  Age: 71 Year
  Sex: Male

DRUGS (9)
  1. CARDIZEM [Suspect]
     Indication: ILL-DEFINED DISORDER
     Dosage: DK UNK PO
     Route: 048
     Dates: end: 20050603
  2. SOTALOL HCL [Suspect]
     Indication: ATRIAL FIBRILLATION
     Dosage: 40 MG
  3. SOTALOL HCL [Suspect]
     Indication: ATRIAL FIBRILLATION
     Dosage: DK UNK PO
     Route: 048
  4. SOTALOL HCL [Suspect]
     Indication: ATRIAL FIBRILLATION
     Dosage: 40 MG BID
  5. SIMVASTATIN [Concomitant]
  6. TRIATEC [Concomitant]
  7. IMDUR [Concomitant]
  8. TOMBYL [Concomitant]
  9. PLAVIX [Concomitant]

REACTIONS (12)
  - ARRHYTHMIA [None]
  - ATRIAL FIBRILLATION [None]
  - BLOOD ALKALINE PHOSPHATASE INCREASED [None]
  - BLOOD PRESSURE DIASTOLIC DECREASED [None]
  - BRADYCARDIA [None]
  - C-REACTIVE PROTEIN INCREASED [None]
  - CALCULUS URINARY [None]
  - CHEST PAIN [None]
  - CONDITION AGGRAVATED [None]
  - DIZZINESS [None]
  - FLANK PAIN [None]
  - GAMMA-GLUTAMYLTRANSFERASE INCREASED [None]
